FAERS Safety Report 7861614-X (Version None)
Quarter: 2011Q4

REPORT INFORMATION
  Report Type: 
  Country: None (occurrence: None)
  Receive Date: 20111027
  Receipt Date: 20111018
  Transmission Date: 20120403
  Serious: Yes (Hospitalization)
  Sender: FDA-Public Use
  Company Number: US-PFIZER INC-2011242657

PATIENT
  Age: 18 Year
  Sex: Male
  Weight: 36.3 kg

DRUGS (10)
  1. CYCLOPHOSPHAMIDE [Suspect]
     Indication: RHABDOMYOSARCOMA
     Dosage: 1200 MG/M2, OVER 30-60 MINUTES ON DAY 1
     Route: 042
     Dates: start: 20110113, end: 20110217
  2. METHADONE HYDROCHLORIDE [Suspect]
  3. PREVACID [Concomitant]
  4. VINORELBINE [Suspect]
     Indication: RHABDOMYOSARCOMA
     Dosage: 25 MG/M2, OVER 6-10 MINUTES ON DAYS 1 AND 8
     Route: 042
     Dates: start: 20110113, end: 20110224
  5. BACTRIM [Concomitant]
  6. TEMSIROLIMUS [Suspect]
     Indication: RHABDOMYOSARCOMA
     Dosage: 15 MG/M2, OVER 30-60 MINUTES ON DAYS 1,8, AND 15
     Route: 042
     Dates: start: 20110113, end: 20110304
  7. GABAPENTIN [Concomitant]
  8. ACETAMINOPHEN AND HYDROCODONE BITARTRATE [Concomitant]
  9. LIDOCAINE HYDROCHLORIDE/PRILOCAINE HYDROCHLORIDE [Concomitant]
     Route: 061
  10. ZOLOFT [Concomitant]

REACTIONS (5)
  - LEUKAEMIA [None]
  - ABDOMINAL PAIN [None]
  - PYREXIA [None]
  - NEOPLASM MALIGNANT [None]
  - SMALL INTESTINAL OBSTRUCTION [None]
